FAERS Safety Report 23291716 (Version 1)
Quarter: 2023Q4

REPORT INFORMATION
  Report Type: Other
  Country: MX (occurrence: None)
  Receive Date: 20231213
  Receipt Date: 20231213
  Transmission Date: 20240109
  Serious: Yes (Disabling)
  Sender: FDA-Public Use
  Company Number: MX-ROCHE-3472730

PATIENT
  Age: 49 Year
  Sex: Female
  Weight: 62 kg

DRUGS (2)
  1. TOCILIZUMAB [Suspect]
     Active Substance: TOCILIZUMAB
     Indication: Rheumatoid arthritis
     Route: 058
     Dates: start: 20231117, end: 20231201
  2. FOLIC ACID [Concomitant]
     Active Substance: FOLIC ACID
     Indication: Rheumatoid arthritis
     Dosage: ONE TABLET DAILY FROM MONDAY TO FRIDAY, THE DOSE WAS NOT REPORTED.
     Route: 048
     Dates: end: 20231205

REACTIONS (5)
  - Pain [Recovering/Resolving]
  - Mouth ulceration [Recovering/Resolving]
  - Dizziness [Recovering/Resolving]
  - Burning sensation [Recovering/Resolving]
  - Joint stiffness [Recovering/Resolving]

NARRATIVE: CASE EVENT DATE: 20231117
